FAERS Safety Report 5570153-0 (Version None)
Quarter: 2007Q4

REPORT INFORMATION
  Report Type: 
  Country: None (occurrence: None)
  Receive Date: 20071217
  Receipt Date: 20071213
  Transmission Date: 20080405
  Serious: Yes (Death, Hospitalization)
  Sender: FDA-Public Use
  Company Number: 2007SP002020

PATIENT
  Age: 65 Year
  Sex: Female
  Weight: 55 kg

DRUGS (12)
  1. TEMODAL [Suspect]
     Indication: GLIOBLASTOMA MULTIFORME
     Dosage: 75 MG/M2; QD; PO; 150 MG/M2; QD; PO
     Route: 048
     Dates: start: 20070106, end: 20070110
  2. TEMODAL [Suspect]
     Indication: GLIOBLASTOMA MULTIFORME
     Dosage: 75 MG/M2; QD; PO; 150 MG/M2; QD; PO
     Route: 048
     Dates: start: 20061023, end: 20071203
  3. DECADRON [Suspect]
     Indication: GLIOBLASTOMA MULTIFORME
     Dosage: INDRP; PO; INDRP
     Route: 048
     Dates: start: 20061103, end: 20061115
  4. DECADRON [Suspect]
     Indication: GLIOBLASTOMA MULTIFORME
     Dosage: INDRP; PO; INDRP
     Route: 048
     Dates: start: 20061116, end: 20070113
  5. DECADRON [Suspect]
     Indication: GLIOBLASTOMA MULTIFORME
     Dosage: INDRP; PO; INDRP
     Route: 048
     Dates: start: 20070118, end: 20070129
  6. BAKTAR (CON.) [Concomitant]
  7. GLYCEOL (CON.) [Concomitant]
  8. GLYCEOL (CON.) [Concomitant]
  9. LOXONIN (CON.) [Concomitant]
  10. GASTER (CON.) [Concomitant]
  11. GASTER D (CON.) [Concomitant]
  12. SELBEX (CON.) [Concomitant]

REACTIONS (6)
  - ALTERED STATE OF CONSCIOUSNESS [None]
  - BRAIN OEDEMA [None]
  - DISSEMINATED INTRAVASCULAR COAGULATION [None]
  - PULMONARY EMBOLISM [None]
  - PULMONARY INFARCTION [None]
  - WHITE BLOOD CELL COUNT DECREASED [None]
